FAERS Safety Report 7164840-0 (Version None)
Quarter: 2010Q4

REPORT INFORMATION
  Report Type: 
  Country: None (occurrence: None)
  Receive Date: 20101215
  Receipt Date: 20101215
  Transmission Date: 20110411
  Serious: Yes (Other)
  Sender: FDA-Public Use
  Company Number: AU-PFIZER INC-2010084183

PATIENT
  Age: 60 Year
  Sex: Male
  Weight: 113 kg

DRUGS (4)
  1. CHAMPIX [Suspect]
     Indication: SMOKING CESSATION THERAPY
     Dosage: 1 MG, 2X/DAY
     Route: 048
     Dates: start: 20100607, end: 20100628
  2. PERINDOPRIL ERBUMINE [Concomitant]
     Indication: HYPERTENSION
     Dosage: 10 MG, 1X/DAY
     Route: 048
  3. FENAC [Concomitant]
     Indication: ANALGESIC THERAPY
     Dosage: 50 MG, 1X/DAY
     Route: 048
  4. CRESTOR [Concomitant]
     Indication: DYSLIPIDAEMIA
     Dosage: 10 MG, 1X/DAY
     Route: 048

REACTIONS (1)
  - BLOOD PRESSURE INCREASED [None]
